FAERS Safety Report 7569581-3 (Version None)
Quarter: 2011Q2

REPORT INFORMATION
  Report Type: 
  Country: None (occurrence: None)
  Receive Date: 20110621
  Receipt Date: 20110621
  Transmission Date: 20111010
  Serious: Yes (Other)
  Sender: FDA-Public Use
  Company Number: None

PATIENT
  Sex: Female
  Weight: 68.2 kg

DRUGS (1)
  1. COPAXONE [Suspect]
     Indication: MULTIPLE SCLEROSIS
     Dosage: 20MG DAILY 057
     Dates: start: 20101218, end: 20110314

REACTIONS (5)
  - PAIN [None]
  - SWELLING [None]
  - DISCOMFORT [None]
  - DIARRHOEA [None]
  - CONTUSION [None]
